FAERS Safety Report 10112228 (Version 1)
Quarter: 2014Q2

REPORT INFORMATION
  Report Type: Spontaneous
  Country: US (occurrence: US)
  Receive Date: 20140425
  Receipt Date: 20140425
  Transmission Date: 20141212
  Serious: No
  Sender: FDA-Public Use
  Company Number: US-009507513-1403USA011476

PATIENT
  Age: 4 Year
  Sex: Male
  Weight: 19.48 kg

DRUGS (3)
  1. CLARITIN CHEWABLE TABLETS [Suspect]
     Indication: HYPERSENSITIVITY
     Dosage: 25 MG, ONCE
     Route: 048
     Dates: start: 20140313
  2. CLARITIN CHEWABLE TABLETS [Suspect]
     Dosage: 5 MG, ONCE
     Route: 048
     Dates: start: 20140313
  3. CLARITIN CHEWABLE TABLETS [Suspect]
     Dosage: 5 MG, PRN
     Route: 048

REACTIONS (2)
  - Overdose [Recovering/Resolving]
  - Accidental exposure to product by child [Recovering/Resolving]
